FAERS Safety Report 7387373-5 (Version None)
Quarter: 2011Q1

REPORT INFORMATION
  Report Type: 
  Country: None (occurrence: None)
  Receive Date: 20110331
  Receipt Date: 20110321
  Transmission Date: 20110831
  Serious: Yes (Other)
  Sender: FDA-Public Use
  Company Number: PHHY2011BR23408

PATIENT
  Age: 78 Year
  Sex: Male

DRUGS (1)
  1. EXELON [Suspect]
     Dosage: 9MG/5CM^2
     Route: 062

REACTIONS (4)
  - AMNESIA [None]
  - PALPITATIONS [None]
  - DRUG INEFFECTIVE [None]
  - APPLICATION SITE PAIN [None]
